FAERS Safety Report 5065201-0 (Version None)
Quarter: 2006Q3

REPORT INFORMATION
  Report Type: 
  Country: None (occurrence: None)
  Receive Date: 20060703
  Receipt Date: 20050511
  Transmission Date: 20061208
  Serious: Yes (Other)
  Sender: FDA-Public Use
  Company Number: WAES 0505USA01470

PATIENT
  Sex: Female

DRUGS (1)
  1. HYZAAR [Suspect]
     Indication: BLOOD PRESSURE INCREASED
     Dosage: 50/12.5 MG/PO
     Route: 048

REACTIONS (1)
  - BLOOD UREA INCREASED [None]
